FAERS Safety Report 21457642 (Version 3)
Quarter: 2022Q4

REPORT INFORMATION
  Report Type: Report from Study
  Country: DE (occurrence: DE)
  Receive Date: 20221014
  Receipt Date: 20221115
  Transmission Date: 20230113
  Serious: Yes (Hospitalization)
  Sender: FDA-Public Use
  Company Number: DE-NOVARTISPH-NVSC2022DE231153

PATIENT
  Age: 48 Year
  Sex: Female
  Weight: 80 kg

DRUGS (1)
  1. RIBOCICLIB [Suspect]
     Active Substance: RIBOCICLIB
     Indication: Breast cancer
     Dosage: 600 MG/DAY
     Route: 048
     Dates: start: 20220805

REACTIONS (1)
  - Dermatitis allergic [Recovered/Resolved]

NARRATIVE: CASE EVENT DATE: 20221007
